FAERS Safety Report 11875797 (Version 1)
Quarter: 2015Q4

REPORT INFORMATION
  Report Type: Report from Study
  Country: US (occurrence: US)
  Receive Date: 20151229
  Receipt Date: 20151229
  Transmission Date: 20160305
  Serious: Yes (Hospitalization, Other)
  Sender: FDA-Public Use
  Company Number: US-PFIZER INC-2015312314

PATIENT
  Age: 52 Year
  Sex: Male
  Weight: 108.5 kg

DRUGS (5)
  1. KEYTRUDA [Suspect]
     Active Substance: PEMBROLIZUMAB
     Indication: RENAL CELL CARCINOMA
     Dosage: 2 MG/KG, Q 3 WEEKS
     Route: 042
     Dates: start: 20150616, end: 20150818
  2. PRINIVIL [Concomitant]
     Active Substance: LISINOPRIL
     Indication: HYPERTENSION
     Dosage: UNK
     Dates: start: 20150608, end: 20150916
  3. INLYTA [Suspect]
     Active Substance: AXITINIB
     Indication: RENAL CELL CARCINOMA
     Dosage: 5 MG, BID
     Route: 048
     Dates: start: 20150608, end: 20150916
  4. TYLENOL [Concomitant]
     Active Substance: ACETAMINOPHEN
     Indication: HEADACHE
     Dosage: 650 MG, 4-5 TIMES PER DAY
     Route: 048
     Dates: end: 20150913
  5. IMODIUM [Concomitant]
     Active Substance: LOPERAMIDE HYDROCHLORIDE
     Indication: DIARRHOEA
     Dosage: UNK
     Dates: start: 20150909, end: 20151014

REACTIONS (2)
  - Hepatitis [Recovered/Resolved with Sequelae]
  - Colitis [Recovered/Resolved with Sequelae]

NARRATIVE: CASE EVENT DATE: 20150915
